FAERS Safety Report 8537312-6 (Version None)
Quarter: 2012Q3

REPORT INFORMATION
  Report Type: 
  Country: None (occurrence: None)
  Receive Date: 20120725
  Receipt Date: 20120718
  Transmission Date: 20120928
  Serious: Yes (Death, Other)
  Sender: FDA-Public Use
  Company Number: JP-PFIZER INC-2012135421

PATIENT
  Age: 71 Year
  Sex: Male

DRUGS (19)
  1. ALDACTONE [Concomitant]
     Indication: POLYURIA
     Dosage: 50 MG, 1X/DAY
     Route: 048
     Dates: start: 20120515
  2. ZOSYN [Concomitant]
     Indication: ANTIBIOTIC THERAPY
     Dosage: 4.5 MG, 3X/DAY
     Route: 042
     Dates: start: 20120525, end: 20120531
  3. AMOBAN [Concomitant]
     Indication: INSOMNIA
     Dosage: 7.5 MG, 1X/DAY
     Route: 048
     Dates: start: 20120321
  4. PLETAL [Suspect]
     Dosage: 200 MG, 2X/DAY
     Route: 048
     Dates: start: 20120525
  5. FAMOTIDINE [Concomitant]
     Dosage: 20 MG, 2X/DAY
     Route: 048
     Dates: start: 20120321
  6. LEVOFLOXACIN [Concomitant]
     Dosage: 500 MG, 1X/DAY
     Route: 048
     Dates: start: 20120522, end: 20120525
  7. LOXONIN [Concomitant]
     Dosage: 100 MG, AS NEEDED
     Route: 062
     Dates: start: 20120321
  8. LASIX [Concomitant]
     Indication: POLYURIA
     Dosage: 40 MG, 1X/DAY
     Route: 048
     Dates: start: 20120515
  9. BISOLVON [Concomitant]
     Indication: SPUTUM RETENTION
     Dosage: 12 MG, 3X/DAY
     Route: 048
     Dates: start: 20120321
  10. ZITHROMAX [Suspect]
     Indication: PNEUMONIA
     Dosage: 500 MG, 1X/DAY
     Route: 042
     Dates: start: 20120525, end: 20120531
  11. OLMESARTAN MEDOXOMIL [Concomitant]
     Indication: HYPERTENSION
     Dosage: 20 MG, 1X/DAY
     Route: 048
     Dates: start: 20120321
  12. LANSOPRAZOLE [Concomitant]
     Dosage: 15 MG, 1X/DAY
     Route: 048
     Dates: start: 20120515, end: 20120524
  13. ASPIRIN [Concomitant]
     Indication: ANTICOAGULANT THERAPY
     Dosage: 100 MG, 1X/DAY
     Route: 048
     Dates: start: 20120515
  14. NITROGLYCERIN [Concomitant]
     Indication: CORONARY ARTERY DILATATION
     Dosage: 0.3 MG, AS NEEDED
     Route: 060
     Dates: start: 20120321
  15. DUTASTERIDE [Concomitant]
     Indication: BENIGN PROSTATIC HYPERPLASIA
     Dosage: 0.5 MG, 1X/DAY
     Route: 048
     Dates: start: 20120403
  16. PLAVIX [Concomitant]
     Indication: PROPHYLAXIS
     Dosage: 75 MG, 1X/DAY
     Route: 048
     Dates: start: 20120515, end: 20120524
  17. WARFARIN [Concomitant]
     Indication: ANTICOAGULANT THERAPY
     Dosage: 2 MG, 1X/DAY
     Route: 048
     Dates: start: 20120321
  18. RABEPRAZOLE SODIUM [Concomitant]
     Dosage: 10 MG, 1X/DAY
     Route: 048
     Dates: start: 20120525
  19. CONIEL [Concomitant]
     Indication: HYPERTENSION
     Dosage: 4 MG, 1X/DAY
     Route: 048
     Dates: start: 20120321

REACTIONS (2)
  - VENTRICULAR TACHYCARDIA [None]
  - INTERSTITIAL LUNG DISEASE [None]
